FAERS Safety Report 7366345-0 (Version None)
Quarter: 2011Q1

REPORT INFORMATION
  Report Type: 
  Country: None (occurrence: None)
  Receive Date: 20110322
  Receipt Date: 20110307
  Transmission Date: 20110831
  Serious: Yes (Other)
  Sender: FDA-Public Use
  Company Number: ES-BIOGENIDEC-2010BI031002

PATIENT
  Age: 47 Year
  Sex: Female

DRUGS (6)
  1. SERTRALINE HYDROCHLORIDE [Concomitant]
     Indication: FATIGUE
  2. TIZANIDINE [Concomitant]
     Indication: MUSCLE SPASTICITY
  3. TYSABRI [Suspect]
  4. ZOLPIDEM [Concomitant]
     Indication: INSOMNIA
  5. TYSABRI [Suspect]
     Indication: MULTIPLE SCLEROSIS
     Route: 042
     Dates: start: 20080208, end: 20090602
  6. SERTRALINE HYDROCHLORIDE [Concomitant]
     Indication: DEPRESSIVE SYMPTOM

REACTIONS (1)
  - JC VIRUS TEST POSITIVE [None]
